FAERS Safety Report 9891117 (Version 2)
Quarter: 2014Q2

REPORT INFORMATION
  Report Type: Spontaneous
  Country: US (occurrence: US)
  Receive Date: 20140212
  Receipt Date: 20140423
  Transmission Date: 20141212
  Serious: No
  Sender: FDA-Public Use
  Company Number: US-TEVA-461102USA

PATIENT
  Age: 60 Year
  Sex: Female

DRUGS (7)
  1. AZILECT [Suspect]
     Indication: PARKINSON^S DISEASE
  2. XANAX [Concomitant]
  3. NORVASC [Concomitant]
  4. SINEMET [Concomitant]
  5. HCTZ [Concomitant]
  6. ZOLOFT [Concomitant]
  7. COUMADIN [Concomitant]

REACTIONS (2)
  - Hypertension [Recovered/Resolved]
  - Insomnia [Recovered/Resolved]
